FAERS Safety Report 5442103-9 (Version None)
Quarter: 2007Q3

REPORT INFORMATION
  Report Type: 
  Country: None (occurrence: None)
  Receive Date: 20070904
  Receipt Date: 20070822
  Transmission Date: 20080115
  Serious: Yes (Disabling)
  Sender: FDA-Public Use
  Company Number: NO-ROCHE-512940

PATIENT
  Age: 51 Year
  Sex: Female

DRUGS (2)
  1. PEGASYS [Suspect]
     Route: 058
     Dates: start: 20030601, end: 20030612
  2. COPEGUS [Suspect]
     Route: 048
     Dates: start: 20030601, end: 20030612

REACTIONS (1)
  - POST VIRAL FATIGUE SYNDROME [None]
